FAERS Safety Report 6197830-5 (Version None)
Quarter: 2009Q2

REPORT INFORMATION
  Report Type: 
  Country: None (occurrence: None)
  Receive Date: 20090521
  Receipt Date: 20090514
  Transmission Date: 20091009
  Serious: Yes (Other)
  Sender: FDA-Public Use
  Company Number: US-PFIZER INC-2006049356

PATIENT
  Sex: Female
  Weight: 75 kg

DRUGS (7)
  1. PROVERA [Suspect]
     Indication: HORMONE REPLACEMENT THERAPY
     Dosage: 10 MG, UNK
     Route: 048
     Dates: start: 19930201
  2. PROVERA [Suspect]
     Dosage: 10 MG, UNK
     Route: 048
     Dates: start: 19950901, end: 19961001
  3. PROVERA [Suspect]
     Dosage: 10 MG, UNK
     Route: 048
     Dates: start: 19961201, end: 19971101
  4. CYCRIN [Suspect]
     Indication: HORMONE REPLACEMENT THERAPY
     Dosage: 10 MG, UNK
     Route: 065
     Dates: start: 19900301
  5. CYCRIN [Suspect]
     Dosage: 10 MG, UNK
     Dates: start: 19930401, end: 19950901
  6. CYCRIN [Suspect]
     Dosage: 10 MG, UNK
     Dates: start: 19961001, end: 19961201
  7. ESTRACE [Suspect]
     Indication: HORMONE REPLACEMENT THERAPY
     Dosage: 2 MG, UNK
     Route: 065
     Dates: start: 19930401, end: 19971101

REACTIONS (1)
  - BREAST CANCER FEMALE [None]
